FAERS Safety Report 5235798-6 (Version None)
Quarter: 2007Q1

REPORT INFORMATION
  Report Type: 
  Country: None (occurrence: None)
  Receive Date: 20061208
  Receipt Date: 20060621
  Transmission Date: 20070707
  Serious: Yes (Other)
  Sender: FDA-Public Use
  Company Number: 2006UW13181

PATIENT
  Age: 83 Year
  Sex: Female
  Weight: 57.606 kg

DRUGS (2)
  1. CRESTOR [Suspect]
     Indication: BLOOD CHOLESTEROL INCREASED
     Dosage: 10 MG PO
     Route: 048
  2. NORVASC /DK/ [Concomitant]

REACTIONS (2)
  - BURNING SENSATION [None]
  - DRY SKIN [None]
